FAERS Safety Report 11243269 (Version 1)
Quarter: 2015Q3

REPORT INFORMATION
  Report Type: Spontaneous
  Country: US (occurrence: US)
  Receive Date: 20150707
  Receipt Date: 20150707
  Transmission Date: 20151125
  Serious: Yes (Hospitalization)
  Sender: FDA-Public Use
  Company Number: US-SA-2015SA096584

PATIENT
  Sex: Male

DRUGS (4)
  1. PROAIR HFA [Concomitant]
     Active Substance: ALBUTEROL SULFATE
     Dosage: CFC FREE 90 MCG/INH DOSE:2 PUFF(S)
     Route: 055
     Dates: start: 20150112
  2. LASIX [Suspect]
     Active Substance: FUROSEMIDE
     Route: 048
     Dates: start: 20140112
  3. LYRICA [Suspect]
     Active Substance: PREGABALIN
     Route: 048
  4. LEVOTHYROXINE SODIUM. [Concomitant]
     Active Substance: LEVOTHYROXINE SODIUM
     Dosage: 200 MCG
     Route: 048
     Dates: start: 20140112

REACTIONS (2)
  - Diabetic neuropathy [Unknown]
  - Coronary artery bypass [Unknown]
